FAERS Safety Report 7916460-5 (Version None)
Quarter: 2011Q4

REPORT INFORMATION
  Report Type: 
  Country: None (occurrence: None)
  Receive Date: 20111114
  Receipt Date: 20111103
  Transmission Date: 20120403
  Serious: Yes (Hospitalization)
  Sender: FDA-Public Use
  Company Number: 2011HGS-002737

PATIENT
  Age: 35 Year
  Sex: Female
  Weight: 82.5547 kg

DRUGS (9)
  1. METHOTREXATE [Concomitant]
  2. PROMETHAZINE (PROMETHAZINE) (PROMETHAZINE) [Concomitant]
  3. DILAUDID (HYDROMORPHONE HYDROCHLORIDE)(HYDROMORPHONE HYDROCHLORIDE) [Concomitant]
  4. PERCOCET (OXYCOCET)(PARACETAMOL, OXYCODONE HYDROCHLORIDE) [Concomitant]
  5. ACYCLOVIR (ACICLOVIR) (ACICLOVIR) [Concomitant]
  6. VASODILAN (ISOXSUPRINE HYDROCHLORIDE)(ISOXSUPRINE HYDROCHLORIDE) [Concomitant]
  7. HYDROXYCHLOROQUINE (HYDROXYCHLOROQUINE)(HYDROXYCHLOROQUINE) [Concomitant]
  8. BENLYSTA [Suspect]
     Indication: SYSTEMIC LUPUS ERYTHEMATOSUS
     Dosage: 818 MG, 1 IN 2 WK, INTRAVENOUS DRIP
     Route: 041
     Dates: start: 20111018, end: 20111018
  9. ALBUTEROL (SALBUTAMOL) (SALBUTAMOL) [Concomitant]

REACTIONS (4)
  - NAUSEA [None]
  - HEADACHE [None]
  - VOMITING [None]
  - MENINGITIS VIRAL [None]
